FAERS Safety Report 9424197 (Version 2)
Quarter: 2013Q3

REPORT INFORMATION
  Report Type: Spontaneous
  Country: US (occurrence: US)
  Receive Date: 20130729
  Receipt Date: 20130923
  Transmission Date: 20140515
  Serious: Yes (Hospitalization)
  Sender: FDA-Public Use
  Company Number: US-BRISTOL-MYERS SQUIBB COMPANY-19142892

PATIENT
  Age: 70 Year
  Sex: Male

DRUGS (1)
  1. BYDUREON [Suspect]
     Dosage: NO OF DOSES-3
     Route: 058

REACTIONS (2)
  - Meningitis aseptic [Unknown]
  - Headache [Unknown]
